FAERS Safety Report 8024857-0 (Version None)
Quarter: 2012Q1

REPORT INFORMATION
  Report Type: 
  Country: None (occurrence: None)
  Receive Date: 20120105
  Receipt Date: 20111228
  Transmission Date: 20120608
  Serious: Yes (Hospitalization)
  Sender: FDA-Public Use
  Company Number: JP-BRISTOL-MYERS SQUIBB COMPANY-16309114

PATIENT
  Age: 81 Year
  Sex: Male

DRUGS (7)
  1. LASIX [Concomitant]
  2. METFORMIN HCL [Suspect]
     Indication: DIABETES MELLITUS
     Dosage: 250MGBID
     Route: 048
     Dates: start: 20110926, end: 20111212
  3. ARGAMATE [Concomitant]
  4. MAGNESIUM SULFATE [Concomitant]
     Route: 048
     Dates: start: 20100906, end: 20111212
  5. CRESTOR [Suspect]
     Indication: HYPERLIPIDAEMIA
     Route: 048
     Dates: start: 20111031, end: 20111212
  6. METFORMIN HCL [Suspect]
     Indication: DYSLIPIDAEMIA
     Dosage: 250MGBID
     Route: 048
     Dates: start: 20110926, end: 20111212
  7. GLIMICRON [Concomitant]
     Indication: DIABETES MELLITUS
     Dosage: RESTARTED ON APR09 (40MG) STOPPED AND AGAIN STARTED ON JUL 2009 (20MG)
     Route: 048
     Dates: start: 20090127, end: 20111212

REACTIONS (6)
  - HEPATIC FUNCTION ABNORMAL [None]
  - DECREASED APPETITE [None]
  - HAEMATURIA [None]
  - BLOOD CHOLESTEROL INCREASED [None]
  - HYPERLIPIDAEMIA [None]
  - BILIRUBINURIA [None]
